FAERS Safety Report 8522073-7 (Version None)
Quarter: 2012Q3

REPORT INFORMATION
  Report Type: 
  Country: None (occurrence: None)
  Receive Date: 20120709
  Receipt Date: 20120629
  Transmission Date: 20120928
  Serious: Yes (Hospitalization)
  Sender: FDA-Public Use
  Company Number: 2012MA008116

PATIENT
  Age: 58 Year
  Sex: Male

DRUGS (4)
  1. DIAZEPAM [Concomitant]
  2. SERTRALINE HYDROCHLORIDE [Suspect]
     Dosage: 200 MG;QD;PO
     Route: 048
     Dates: start: 20100527, end: 20100807
  3. QUETIAPINE FUMARATE [Suspect]
     Dosage: 800 MG;QD;PO
     Route: 048
     Dates: start: 20100522, end: 20100811
  4. AKINETON [Suspect]
     Dosage: 4 MG;QD;PO
     Route: 048
     Dates: start: 20100625, end: 20100710

REACTIONS (1)
  - DELIRIUM [None]
